FAERS Safety Report 5654690-6 (Version None)
Quarter: 2008Q1

REPORT INFORMATION
  Report Type: 
  Country: None (occurrence: None)
  Receive Date: 20080307
  Receipt Date: 20080303
  Transmission Date: 20080703
  Serious: Yes (Other)
  Sender: FDA-Public Use
  Company Number: GB-JNJFOC-20070905440

PATIENT
  Sex: Female

DRUGS (10)
  1. CONCERTA [Suspect]
     Indication: ATTENTION DEFICIT/HYPERACTIVITY DISORDER
     Route: 048
  2. BECLOMETHASONE DIPROPIONATE [Concomitant]
     Indication: ASTHMA
     Route: 055
  3. PEPTAC [Concomitant]
     Indication: DYSPNOEA
     Route: 048
  4. ALBUTEROL [Concomitant]
     Indication: ASTHMA
     Route: 055
  5. NICOTINE [Concomitant]
     Route: 062
  6. NICOTINE [Concomitant]
     Indication: SMOKING CESSATION THERAPY
     Route: 062
  7. DULOXETINE [Concomitant]
     Route: 048
  8. DULOXETINE [Concomitant]
     Indication: DEPRESSION
     Route: 048
  9. ACETAMINOPHEN [Concomitant]
     Route: 048
  10. IBUPROFEN [Concomitant]
     Indication: SYMPHYSIOLYSIS
     Route: 048

REACTIONS (2)
  - DRUG EXPOSURE DURING PREGNANCY [None]
  - SYMPHYSIOLYSIS [None]
